FAERS Safety Report 22166378 (Version 1)
Quarter: 2023Q1

REPORT INFORMATION
  Report Type: Spontaneous
  Country: US (occurrence: None)
  Receive Date: 20230330
  Receipt Date: 20230330
  Transmission Date: 20230417
  Serious: Yes (Other)
  Sender: FDA-Public Use
  Company Number: None

PATIENT
  Age: 23 Year
  Sex: Male
  Weight: 108 kg

DRUGS (1)
  1. CABENUVA [Suspect]
     Active Substance: CABOTEGRAVIR\RILPIVIRINE
     Indication: HIV infection
     Dosage: OTHER STRENGTH : 600+ 900MG/ML;?OTHER FREQUENCY : EVERY 8 WEEKS;?
     Route: 030
     Dates: start: 20221108

REACTIONS (4)
  - Injection site abscess [None]
  - Abscess rupture [None]
  - Abscess [None]
  - Skin erosion [None]

NARRATIVE: CASE EVENT DATE: 20230202
